FAERS Safety Report 9836602 (Version 1)
Quarter: 2013Q4

REPORT INFORMATION
  Report Type: Spontaneous
  Country: US (occurrence: None)
  Receive Date: 20131120
  Receipt Date: 20131120
  Transmission Date: 20140711
  Serious: No
  Sender: FDA-Public Use
  Company Number: 1000049453

PATIENT
  Age: 41 Year
  Sex: Female

DRUGS (7)
  1. VIIBRYD (VILAZODONE HYDROCHLORIDE) (10 MILLIGRAM, TABLET) [Suspect]
     Indication: MAJOR DEPRESSION
     Dosage: 10 MG, 1 IN 1 D
     Route: 048
     Dates: start: 20130918, end: 20130924
  2. ZYRTEC [Concomitant]
  3. TRAZODONE [Concomitant]
  4. PROPRANOLOL [Concomitant]
  5. VERAPAMIL [Concomitant]
  6. CLONIDINE [Concomitant]
  7. OMEPRAZOLE [Concomitant]

REACTIONS (7)
  - Migraine [None]
  - Eyelid oedema [None]
  - Foreign body sensation in eyes [None]
  - Back pain [None]
  - Paraesthesia [None]
  - Pain in extremity [None]
  - Arthralgia [None]
